FAERS Safety Report 14836698 (Version 1)
Quarter: 2018Q2

REPORT INFORMATION
  Report Type: Spontaneous
  Country: AU (occurrence: AU)
  Receive Date: 20180502
  Receipt Date: 20180502
  Transmission Date: 20180711
  Serious: Yes (Disabling)
  Sender: FDA-Public Use
  Company Number: AU-LPDUSPRD-20180694

PATIENT
  Age: 36 Year
  Sex: Female
  Weight: 70 kg

DRUGS (1)
  1. FERINJECT [Suspect]
     Active Substance: FERRIC CARBOXYMALTOSE
     Dosage: (1 TOTAL)
     Route: 040
     Dates: start: 20171126, end: 20171126

REACTIONS (1)
  - Muscle spasms [Recovered/Resolved with Sequelae]

NARRATIVE: CASE EVENT DATE: 20171126
